FAERS Safety Report 9515852 (Version 1)
Quarter: 2013Q3

REPORT INFORMATION
  Report Type: Spontaneous
  Country: US (occurrence: US)
  Receive Date: 20130911
  Receipt Date: 20130911
  Transmission Date: 20140515
  Serious: No
  Sender: FDA-Public Use
  Company Number: US-TEVA-431312USA

PATIENT
  Sex: Female
  Weight: 69.46 kg

DRUGS (2)
  1. COPAXONE [Suspect]
     Indication: MULTIPLE SCLEROSIS
     Dates: start: 20130809
  2. MIDRIN [Concomitant]

REACTIONS (2)
  - Weight increased [Not Recovered/Not Resolved]
  - Nausea [Recovered/Resolved]
